FAERS Safety Report 17818979 (Version 1)
Quarter: 2020Q2

REPORT INFORMATION
  Report Type: Spontaneous
  Country: US (occurrence: US)
  Receive Date: 20200523
  Receipt Date: 20200523
  Transmission Date: 20200714
  Serious: Yes (Other)
  Sender: FDA-Public Use
  Company Number: US-MACLEODS PHARMACEUTICALS US LTD-MAC2020026559

PATIENT

DRUGS (3)
  1. OMEPRAZOLE. [Concomitant]
     Active Substance: OMEPRAZOLE
     Indication: REFLUX LARYNGITIS
     Dosage: 40 MILLIGRAM, QD, 30 MINUTES PRIOR TO BREAKFAST
     Route: 048
  2. ZANTAC [Concomitant]
     Active Substance: RANITIDINE HYDROCHLORIDE
     Indication: REFLUX LARYNGITIS
     Dosage: 300 MILLIGRAM, QD, ZANTAC 300 MG PO BEFORE BEDTIME
     Route: 048
  3. TRIAMCINOLONE [Suspect]
     Active Substance: TRIAMCINOLONE
     Indication: GRANULOMA
     Dosage: 1 MILLILITER, SINGLE, 40 MG/ML INJECTION
     Route: 065

REACTIONS (3)
  - Dysphonia [Unknown]
  - Product deposit [Unknown]
  - Injection site plaque [Unknown]
